FAERS Safety Report 7517072-8 (Version None)
Quarter: 2011Q2

REPORT INFORMATION
  Report Type: 
  Country: None (occurrence: None)
  Receive Date: 20110503
  Receipt Date: 20100608
  Transmission Date: 20111010
  Serious: Yes (Death, Hospitalization)
  Sender: FDA-Public Use
  Company Number: KV200900835

PATIENT
  Age: 68 Year
  Sex: Male
  Weight: 79.4 kg

DRUGS (11)
  1. ISOSORBIDE MONONITRATE [Suspect]
     Indication: PRODUCT USED FOR UNKNOWN INDICATION
     Dosage: 30 MG, QD, ORAL
     Route: 048
     Dates: start: 20070201, end: 20071203
  2. LASIX [Concomitant]
  3. LIPITOR [Concomitant]
  4. NITROSTAT [Concomitant]
  5. PLAVIX [Concomitant]
  6. RESTORIL /00393701/ (TEMAZEPAM) [Concomitant]
  7. SIMVASTATIN [Concomitant]
  8. ASPIRIN [Concomitant]
  9. LISINOPRIL [Concomitant]
  10. MULTIVITAMIN /00831701/ (CLOPIDOGREL) [Concomitant]
  11. CRESTOR [Concomitant]

REACTIONS (13)
  - SUPRAVENTRICULAR EXTRASYSTOLES [None]
  - BRADYCARDIA [None]
  - ABDOMINAL PAIN [None]
  - HEADACHE [None]
  - VENTRICULAR DYSFUNCTION [None]
  - NAUSEA [None]
  - VENTRICULAR HYPERTROPHY [None]
  - PALPITATIONS [None]
  - VENTRICULAR EXTRASYSTOLES [None]
  - ATRIAL HYPERTROPHY [None]
  - ACUTE MYOCARDIAL INFARCTION [None]
  - CORONARY ARTERY DISEASE [None]
  - VOMITING [None]
